FAERS Safety Report 4786042-5 (Version None)
Quarter: 2005Q3

REPORT INFORMATION
  Report Type: 
  Country: None (occurrence: None)
  Receive Date: 20050930
  Receipt Date: 20050920
  Transmission Date: 20060218
  Serious: Yes (Death)
  Sender: FDA-Public Use
  Company Number: 2005042639

PATIENT
  Age: 46 Year
  Sex: Male

DRUGS (4)
  1. LYRICA [Suspect]
     Indication: BACK PAIN
     Dosage: 150 MG, ORAL
     Route: 048
     Dates: end: 20041009
  2. ALCOHOL (ETHANOL) [Suspect]
     Indication: ILL-DEFINED DISORDER
     Dosage: ORAL
     Route: 048
  3. TRAMADOL HCL [Concomitant]
  4. GABAPENTIN [Concomitant]

REACTIONS (6)
  - ALCOHOLISM [None]
  - CORONARY ARTERY ATHEROSCLEROSIS [None]
  - CORONARY ARTERY INSUFFICIENCY [None]
  - EMPHYSEMA [None]
  - EXCORIATION [None]
  - OVERDOSE [None]
